FAERS Safety Report 25853701 (Version 1)
Quarter: 2025Q3

REPORT INFORMATION
  Report Type: Spontaneous
  Country: EU (occurrence: EU)
  Receive Date: 20250926
  Receipt Date: 20250926
  Transmission Date: 20251020
  Serious: Yes (Other)
  Sender: B. BRAUN MEDICAL INC.
  Company Number: EU-B. Braun Medical Inc.-FR-BBM-202503590

PATIENT
  Sex: Female

DRUGS (1)
  1. ACETAMINOPHEN [Suspect]
     Active Substance: ACETAMINOPHEN
     Indication: Suicide attempt

REACTIONS (4)
  - Lactic acidosis [Unknown]
  - Hypothermia [Unknown]
  - Toxicity to various agents [Unknown]
  - Intentional overdose [Unknown]
